FAERS Safety Report 8564282-7 (Version None)
Quarter: 2012Q3

REPORT INFORMATION
  Report Type: 
  Country: None (occurrence: None)
  Receive Date: 20120803
  Receipt Date: 20120725
  Transmission Date: 20120928
  Serious: Yes (Hospitalization)
  Sender: FDA-Public Use
  Company Number: US-JNJFOC-20120715205

PATIENT
  Sex: Male

DRUGS (3)
  1. AZULFIDINE [Concomitant]
     Route: 065
  2. REMICADE [Suspect]
     Indication: PRODUCT USED FOR UNKNOWN INDICATION
     Route: 042
  3. STEROIDS NOS [Concomitant]
     Route: 065

REACTIONS (1)
  - MENINGITIS LISTERIA [None]
